FAERS Safety Report 7249818-0 (Version None)
Quarter: 2011Q1

REPORT INFORMATION
  Report Type: 
  Country: None (occurrence: None)
  Receive Date: 20110128
  Receipt Date: 20100422
  Transmission Date: 20110831
  Serious: No
  Sender: FDA-Public Use
  Company Number: A0857177A

PATIENT
  Sex: Female

DRUGS (5)
  1. ADDERALL 10 [Suspect]
     Indication: DEPRESSION
     Route: 065
  2. ABILIFY [Suspect]
     Indication: DEPRESSION
     Route: 065
  3. WELLBUTRIN [Suspect]
     Indication: DEPRESSION
     Route: 065
  4. PROZAC [Suspect]
     Indication: DEPRESSION
     Route: 065
  5. SEROQUEL [Suspect]
     Indication: DEPRESSION
     Route: 065

REACTIONS (1)
  - DRUG INEFFECTIVE [None]
